FAERS Safety Report 18816225 (Version 3)
Quarter: 2021Q2

REPORT INFORMATION
  Report Type: Other
  Country: US (occurrence: US)
  Receive Date: 20210201
  Receipt Date: 20210519
  Transmission Date: 20210717
  Serious: Yes (Other)
  Sender: FDA-Public Use
  Company Number: US-ROCHE-2755121

PATIENT
  Sex: Female

DRUGS (8)
  1. FOLIC ACID. [Concomitant]
     Active Substance: FOLIC ACID
  2. ZELBORAF [Suspect]
     Active Substance: VEMURAFENIB
     Indication: SUNBURN
  3. METHOTREXATE. [Concomitant]
     Active Substance: METHOTREXATE
     Dates: start: 20210409
  4. ZELBORAF [Suspect]
     Active Substance: VEMURAFENIB
     Indication: ALOPECIA SCARRING
  5. ZELBORAF [Suspect]
     Active Substance: VEMURAFENIB
     Indication: HISTIOCYTOSIS
     Dosage: TAKE 2 TABLET(S) BY MOUTH EVERY 12 HOURS
     Route: 048
     Dates: start: 201808
  6. ZELBORAF [Suspect]
     Active Substance: VEMURAFENIB
     Indication: ALOPECIA AREATA
  7. ZELBORAF [Suspect]
     Active Substance: VEMURAFENIB
     Indication: ESSENTIAL HYPERTENSION
  8. ZELBORAF [Suspect]
     Active Substance: VEMURAFENIB
     Indication: UVEITIS

REACTIONS (6)
  - Intraocular pressure increased [Unknown]
  - Off label use [Unknown]
  - Dry skin [Unknown]
  - Illness [Unknown]
  - Retinal haemorrhage [Unknown]
  - Headache [Unknown]
